FAERS Safety Report 8288179-5 (Version None)
Quarter: 2012Q2

REPORT INFORMATION
  Report Type: 
  Country: None (occurrence: None)
  Receive Date: 20120416
  Receipt Date: 20120411
  Transmission Date: 20120825
  Serious: Yes (Hospitalization, Other)
  Sender: FDA-Public Use
  Company Number: US-BAYER-200943580NA

PATIENT
  Age: 61 Year
  Sex: Male
  Weight: 78 kg

DRUGS (35)
  1. DOPAMINE HCL [Concomitant]
     Dosage: 5.8 UNITS/MIN
     Route: 042
     Dates: start: 20020325, end: 20020325
  2. ETOMIDATE [Concomitant]
     Dosage: 20 MG, UNK
     Route: 042
     Dates: start: 20020325, end: 20020325
  3. FENTANYL [Concomitant]
     Dosage: 20 MG, UNK
     Route: 042
     Dates: start: 20020325, end: 20020325
  4. CALCIUM CHLORIDE [Concomitant]
     Dosage: 1 G, UNK
     Route: 042
     Dates: start: 20020325, end: 20020325
  5. MANNITOL [Concomitant]
     Dosage: 50 ML, UNK
     Route: 042
     Dates: start: 20020325, end: 20020325
  6. VERSED [Concomitant]
     Dosage: 5 MG, UNK
     Route: 042
     Dates: start: 20020325, end: 20020325
  7. ANCEF [Concomitant]
     Dosage: 1 G, UNK
     Route: 042
     Dates: start: 20020325, end: 20020325
  8. ALBUMIN (HUMAN) [Concomitant]
     Dosage: 500 ML, UNK
     Route: 042
     Dates: start: 20020325, end: 20020325
  9. XYLOCAINE [Concomitant]
     Dosage: 100 MG, UNK
     Route: 042
     Dates: start: 20020325, end: 20020325
  10. RESTORIL [Concomitant]
     Dosage: 15 MG, HS
     Route: 048
  11. MULTI-VITAMIN [Concomitant]
     Dosage: 1 DAILY
     Route: 048
  12. LASIX [Concomitant]
     Dosage: 10 ML, UNK
     Route: 042
     Dates: start: 20020325, end: 20020325
  13. PAPAVERINE [Concomitant]
     Dosage: 2 ML, UNK
     Route: 042
     Dates: start: 20020325, end: 20020325
  14. DIGOXIN [Concomitant]
     Dosage: 0.125 MG, QD
     Route: 048
  15. ERYTHROMYCIN [Concomitant]
     Dosage: 500 MG, TID
     Route: 048
  16. DOBUTREX [Concomitant]
     Dosage: 5 MCG/MIN
     Route: 042
     Dates: start: 20020325, end: 20020325
  17. LIDOCAINE [Concomitant]
     Dosage: 100 MG/20 MG/ML
     Route: 042
     Dates: start: 20020325, end: 20020325
  18. SODIUM BICARBONATE [Concomitant]
     Dosage: 50 MG, UNK
     Route: 042
     Dates: start: 20020325, end: 20020325
  19. SOLU-MEDROL [Concomitant]
     Dosage: 1 G, UNK
     Route: 042
     Dates: start: 20020325, end: 20020325
  20. NITROGLYCERIN [Concomitant]
     Dosage: 5 ML/HR
     Route: 042
     Dates: start: 20020325, end: 20020325
  21. TRASYLOL [Suspect]
     Dosage: 25 ML/HR (INFUSION)
     Route: 042
     Dates: start: 20020325, end: 20020325
  22. DIOVAN [Concomitant]
     Dosage: 160 MG, QD
     Route: 048
  23. PROTAMINE SULFATE [Concomitant]
     Dosage: 250 MG, UNK
     Route: 042
     Dates: start: 20020325, end: 20020325
  24. TRAZODONE HCL [Concomitant]
     Dosage: 50 MG, UNK
  25. TRASYLOL [Suspect]
     Indication: CORONARY ARTERY BYPASS
     Dosage: 1 ML, ONCE (INITIAL DOSE)
     Route: 042
     Dates: start: 20020325, end: 20020325
  26. ZOLOFT [Concomitant]
     Dosage: 25 MG, QD
     Route: 048
  27. ZINC SULFATE [Concomitant]
     Dosage: 50 MG, QD
     Route: 048
  28. LASIX [Concomitant]
     Dosage: 40 MG, QD
     Route: 048
  29. ASPIRIN [Concomitant]
     Dosage: 81 MG, QD
     Route: 048
  30. VECURONIUM BROMIDE [Concomitant]
     Dosage: 4 MG, UNK
     Route: 042
     Dates: start: 20020325, end: 20020325
  31. CLONIDINE [Concomitant]
     Dosage: 0.1 MG, UNK
     Route: 048
  32. TRASYLOL [Suspect]
     Dosage: 100 ML (LOADING DOSE)
     Route: 042
     Dates: start: 20020325, end: 20020325
  33. HEPARIN [Concomitant]
     Dosage: 40,000 UNITS/CC
     Route: 042
     Dates: start: 20020325, end: 20020325
  34. PLATELETS [Concomitant]
     Dosage: 1 U, UNK
     Route: 042
     Dates: start: 20020325, end: 20020325
  35. MUCOMYST [Concomitant]
     Dosage: 600 MG, BID
     Route: 048

REACTIONS (6)
  - INJURY [None]
  - PAIN [None]
  - UNEVALUABLE EVENT [None]
  - DIABETES MELLITUS [None]
  - RENAL FAILURE [None]
  - CEREBROVASCULAR ACCIDENT [None]
